FAERS Safety Report 20993400 (Version 1)
Quarter: 2022Q2

REPORT INFORMATION
  Report Type: Spontaneous
  Country: US (occurrence: None)
  Receive Date: 20220621
  Receipt Date: 20220621
  Transmission Date: 20220720
  Serious: No
  Sender: FDA-Public Use
  Company Number: None

PATIENT
  Age: 41 Year
  Sex: Female
  Weight: 74.25 kg

DRUGS (1)
  1. UP AND UP POWDERLAX [Suspect]
     Active Substance: POLYETHYLENE GLYCOL 3350
     Indication: Bowel preparation
     Dates: start: 20220618, end: 20220619

REACTIONS (4)
  - Pruritus [None]
  - Periorbital swelling [None]
  - Ocular hyperaemia [None]
  - Headache [None]

NARRATIVE: CASE EVENT DATE: 20220619
